FAERS Safety Report 4312054-1 (Version None)
Quarter: 2004Q1

REPORT INFORMATION
  Report Type: 
  Country: None (occurrence: None)
  Receive Date: 20040303
  Receipt Date: 20040220
  Transmission Date: 20041129
  Serious: Yes (Other)
  Sender: FDA-Public Use
  Company Number: 2004200733GB

PATIENT

DRUGS (2)
  1. CELEBREX [Suspect]
     Dosage: ORAL
     Route: 048
  2. ASPIRIN [Concomitant]

REACTIONS (1)
  - HAEMORRHAGE [None]
